FAERS Safety Report 9726196 (Version 2)
Quarter: 2014Q1

REPORT INFORMATION
  Report Type: Spontaneous
  Country: US (occurrence: US)
  Receive Date: 20131203
  Receipt Date: 20140110
  Transmission Date: 20141002
  Serious: Yes (Hospitalization)
  Sender: FDA-Public Use
  Company Number: US-BAYER-2013-144877

PATIENT
  Age: 28 Year
  Sex: Female
  Weight: 72.56 kg

DRUGS (5)
  1. MIRENA [Suspect]
     Indication: CONTRACEPTION
     Dosage: 20 MCG/24HR, CONT
     Route: 015
     Dates: start: 20111021, end: 20121102
  2. ROCEPHIN [Concomitant]
  3. FLAGYL [Concomitant]
  4. LORTAB [Concomitant]
  5. ZOFRAN [Concomitant]

REACTIONS (6)
  - Uterine perforation [None]
  - Injury [None]
  - Anxiety [None]
  - Ovarian cyst [None]
  - Pelvic inflammatory disease [None]
  - Device misuse [None]
